FAERS Safety Report 9697662 (Version 2)
Quarter: 2013Q4

REPORT INFORMATION
  Report Type: Spontaneous
  Country: US (occurrence: US)
  Receive Date: 20131120
  Receipt Date: 20131231
  Transmission Date: 20140711
  Serious: No
  Sender: FDA-Public Use
  Company Number: US-PFIZER INC-2013326827

PATIENT
  Age: 58 Year
  Sex: Female
  Weight: 90.7 kg

DRUGS (5)
  1. NORVASC [Suspect]
     Indication: HYPERTENSION
     Dosage: UNK, 1X/DAY
     Dates: start: 2012
  2. LIPITOR [Suspect]
     Dosage: UNK, 1X/DAY
     Dates: start: 2012
  3. LYRICA [Suspect]
     Indication: NEUROPATHY PERIPHERAL
     Dosage: 50 MG ONE CAPSULE IN MORNING, ONE CAPSULE AT AFTERNOON AND TWO CAPSULES AT NIGHT, 3X/DAY
     Dates: start: 2013
  4. JANUMET [Concomitant]
     Indication: DIABETES MELLITUS
     Dosage: UNK
  5. METFORMIN [Concomitant]
     Indication: DIABETES MELLITUS
     Dosage: UNK

REACTIONS (1)
  - Influenza [Not Recovered/Not Resolved]
